FAERS Safety Report 17039845 (Version 3)
Quarter: 2020Q1

REPORT INFORMATION
  Report Type: Report from Study
  Country: None (occurrence: US)
  Receive Date: 20191116
  Receipt Date: 20200312
  Transmission Date: 20200409
  Serious: Yes (Death, Hospitalization, Other)
  Sender: FDA-Public Use
  Company Number: US-ABBVIE-19K-163-3002535-00

PATIENT
  Age: 69 Year
  Sex: Male

DRUGS (5)
  1. RED BLOOD CELLS [Concomitant]
     Active Substance: HUMAN RED BLOOD CELL
     Indication: PRODUCT USED FOR UNKNOWN INDICATION
  2. VENCLEXTA [Suspect]
     Active Substance: VENETOCLAX
     Indication: REFRACTORY ANAEMIA WITH RINGED SIDEROBLASTS
  3. VENCLEXTA [Suspect]
     Active Substance: VENETOCLAX
     Indication: HAEMOCHROMATOSIS
     Route: 048
     Dates: start: 20190624, end: 2019
  4. CARVEDILOL. [Concomitant]
     Active Substance: CARVEDILOL
     Indication: PRODUCT USED FOR UNKNOWN INDICATION
  5. ACYCLOVIR. [Concomitant]
     Active Substance: ACYCLOVIR
     Indication: PRODUCT USED FOR UNKNOWN INDICATION

REACTIONS (8)
  - Off label use [Unknown]
  - Shock [Unknown]
  - Anaemia [Fatal]
  - Pneumonia [Unknown]
  - Pyrexia [Unknown]
  - Atrial fibrillation [Unknown]
  - Neutropenia [Unknown]
  - Thrombocytopenia [Unknown]

NARRATIVE: CASE EVENT DATE: 20190624
